FAERS Safety Report 10517361 (Version 1)
Quarter: 2014Q4

REPORT INFORMATION
  Report Type: Spontaneous
  Country: US (occurrence: US)
  Receive Date: 20141014
  Receipt Date: 20141014
  Transmission Date: 20150528
  Serious: Yes (Other)
  Sender: FDA-Public Use
  Company Number: US-BAUSCH-BL-2014-006227

PATIENT
  Age: 43 Year
  Sex: Female
  Weight: 90.8 kg

DRUGS (1)
  1. TROPICAMIDE OPHTHALMIC SOLUTION USP 1% [Suspect]
     Active Substance: TROPICAMIDE
     Indication: EYE OPERATION
     Route: 047
     Dates: start: 20140925, end: 20140925

REACTIONS (3)
  - Loss of consciousness [Not Recovered/Not Resolved]
  - Sinus disorder [Not Recovered/Not Resolved]
  - Vertigo [Not Recovered/Not Resolved]

NARRATIVE: CASE EVENT DATE: 20140925
